FAERS Safety Report 15422347 (Version 1)
Quarter: 2018Q3

REPORT INFORMATION
  Report Type: Report from Study
  Country: None (occurrence: US)
  Receive Date: 20180924
  Receipt Date: 20180924
  Transmission Date: 20181010
  Serious: Yes (Other)
  Sender: FDA-Public Use
  Company Number: US-ABBVIE-18S-163-2493972-00

PATIENT
  Sex: Male

DRUGS (1)
  1. CREON [Suspect]
     Active Substance: PANCRELIPASE AMYLASE\PANCRELIPASE LIPASE\PANCRELIPASE PROTEASE
     Indication: PRODUCT USED FOR UNKNOWN INDICATION
     Route: 048

REACTIONS (7)
  - Knee operation [Unknown]
  - Gastric operation [Unknown]
  - Shoulder operation [Unknown]
  - Spinal fusion surgery [Unknown]
  - Hernia [Unknown]
  - Oesophagogastric fundoplasty [Unknown]
  - Foot operation [Unknown]
